FAERS Safety Report 6789392-6 (Version None)
Quarter: 2010Q2

REPORT INFORMATION
  Report Type: 
  Country: None (occurrence: None)
  Receive Date: 20100623
  Receipt Date: 20090604
  Transmission Date: 20101027
  Serious: Yes (Other)
  Sender: FDA-Public Use
  Company Number: US-PFIZER INC-2008056551

PATIENT
  Sex: Female

DRUGS (6)
  1. PROVERA [Suspect]
     Indication: HORMONE REPLACEMENT THERAPY
     Dosage: 2.5 MG, UNK
     Route: 048
     Dates: start: 19900713, end: 19950625
  2. PREMARIN [Suspect]
     Indication: HORMONE REPLACEMENT THERAPY
     Dosage: 0.9 MG, UNK
     Dates: start: 19900629, end: 19930526
  3. PREMARIN [Suspect]
     Dosage: 0.625 MG, UNK
     Dates: start: 19930526, end: 19941130
  4. PREMARIN [Suspect]
     Dosage: 0.9 MG, UNK
     Dates: start: 19941130, end: 19950625
  5. PREMPRO [Suspect]
     Indication: HORMONE REPLACEMENT THERAPY
     Dosage: 0.625/2.5
     Dates: start: 19950625, end: 19981201
  6. FOSAMAX [Concomitant]
     Indication: OSTEOPENIA
     Dosage: UNK
     Dates: start: 19981201

REACTIONS (1)
  - BREAST CANCER FEMALE [None]
